FAERS Safety Report 7414687-2 (Version None)
Quarter: 2011Q2

REPORT INFORMATION
  Report Type: 
  Country: None (occurrence: None)
  Receive Date: 20110414
  Receipt Date: 20091122
  Transmission Date: 20111010
  Serious: Yes (Hospitalization, Other)
  Sender: FDA-Public Use
  Company Number: US-BAYER-201039071NA

PATIENT
  Age: 50 Year
  Sex: Female
  Weight: 84 kg

DRUGS (61)
  1. TRASYLOL [Suspect]
     Dosage: 2,000,000 KIU OVER 30 MINUTES
     Route: 042
     Dates: start: 20040105, end: 20040105
  2. LOVENOX [Concomitant]
     Dosage: UNK
     Dates: end: 20030819
  3. LOVENOX [Concomitant]
     Dosage: UNK
     Dates: start: 20030821
  4. LASIX [Concomitant]
     Indication: PRODUCT USED FOR UNKNOWN INDICATION
     Dosage: 20-80MG EVERY MORNING
     Route: 048
     Dates: start: 20030801
  5. ATIVAN [Concomitant]
     Indication: PRODUCT USED FOR UNKNOWN INDICATION
     Dosage: 0.5-1.0MG AS NEEDED
     Route: 048
     Dates: start: 20040104
  6. HUMULIN 70/30 [Concomitant]
     Indication: PRODUCT USED FOR UNKNOWN INDICATION
     Dosage: 20 U IN THE MORNING
     Route: 058
     Dates: start: 20030818
  7. COUMADIN [Concomitant]
     Indication: PRODUCT USED FOR UNKNOWN INDICATION
     Dosage: 7.5 MG, QD
     Route: 048
     Dates: start: 20031202
  8. CEFUROXIME [Concomitant]
     Indication: PRODUCT USED FOR UNKNOWN INDICATION
     Dosage: 1.5 G, UNK
     Route: 042
     Dates: start: 20040105, end: 20040105
  9. NOVOLIN R [Concomitant]
     Indication: PRODUCT USED FOR UNKNOWN INDICATION
     Dosage: 10 U, UNK
     Route: 042
     Dates: start: 20040105, end: 20040110
  10. RED BLOOD CELLS [Concomitant]
     Dosage: 2 U, UNK
     Dates: start: 20030820
  11. RED BLOOD CELLS [Concomitant]
     Dosage: 2 U, UNK
     Dates: start: 20030825
  12. LOVENOX [Concomitant]
     Indication: PRODUCT USED FOR UNKNOWN INDICATION
     Dosage: 80 MG, (0.8 ML) BID
     Route: 058
     Dates: start: 20040104, end: 20040109
  13. NIFEREX [Concomitant]
     Indication: PRODUCT USED FOR UNKNOWN INDICATION
     Dosage: 150 MG, QD
     Route: 048
     Dates: start: 20040104
  14. ARANESP [Concomitant]
     Indication: NEPHROGENIC ANAEMIA
     Dosage: 60-200 MEQ WEEKLY OR AS NEEDED
     Route: 058
     Dates: start: 20031208
  15. FOLIC ACID [Concomitant]
     Indication: PRODUCT USED FOR UNKNOWN INDICATION
     Dosage: 1.0-2.5MG EVERY DAY
     Route: 048
     Dates: start: 20031213
  16. HYDROCHLOROTHIAZIDE [Concomitant]
     Indication: PRODUCT USED FOR UNKNOWN INDICATION
     Dosage: LONG TERM USE
     Route: 048
     Dates: start: 20030801
  17. DARVOCET-N 50 [Concomitant]
     Indication: PRODUCT USED FOR UNKNOWN INDICATION
     Dosage: 1-2 EVERY 6 HOURS
     Route: 048
     Dates: start: 20040104
  18. MECLIZINE [Concomitant]
     Indication: PRODUCT USED FOR UNKNOWN INDICATION
     Dosage: 25 MG TO 4 TIMES A DAY
     Route: 048
     Dates: start: 20040104, end: 20040106
  19. HYDROMORPHONE HCL [Concomitant]
     Indication: PRODUCT USED FOR UNKNOWN INDICATION
     Dosage: 2 MG/HR, UNK
     Route: 042
     Dates: start: 20040105, end: 20040105
  20. RED BLOOD CELLS [Concomitant]
     Dosage: 3 U, UNK
     Dates: start: 20040105
  21. TRASYLOL [Suspect]
     Indication: MITRAL VALVE REPAIR
     Dosage: 1 ML, INITIAL DOSE
     Route: 042
     Dates: start: 20040105
  22. HUMULIN R [Concomitant]
     Dosage: 0.16 UNITS-5 UNITS
     Route: 058
     Dates: start: 20040104
  23. COUMADIN [Concomitant]
     Dosage: UNK
     Dates: end: 20030819
  24. HEPARIN [Concomitant]
     Indication: PRODUCT USED FOR UNKNOWN INDICATION
     Dosage: 2000-17000 UNITS
     Route: 042
     Dates: start: 20040105, end: 20040105
  25. QUININE SULFATE [Concomitant]
     Indication: PRODUCT USED FOR UNKNOWN INDICATION
     Dosage: 325 MG, UNK
     Route: 048
     Dates: start: 20040104
  26. AMIODARONE [Concomitant]
     Indication: PRODUCT USED FOR UNKNOWN INDICATION
     Dosage: 200-400MCG DAILY
     Route: 048
     Dates: start: 20030818
  27. HUMULIN R [Concomitant]
     Indication: PRODUCT USED FOR UNKNOWN INDICATION
     Dosage: 0.16 UNITS - 5 UNITS
     Route: 058
     Dates: start: 20030819
  28. ALTACE [Concomitant]
     Indication: PRODUCT USED FOR UNKNOWN INDICATION
     Dosage: 2.5-5MG EVERY DAY
     Route: 048
     Dates: start: 20031203
  29. ZEMURON [Concomitant]
     Indication: PRODUCT USED FOR UNKNOWN INDICATION
     Dosage: 50 MG
     Route: 042
     Dates: start: 20040105, end: 20040105
  30. MANNITOL [Concomitant]
     Indication: PRODUCT USED FOR UNKNOWN INDICATION
     Dosage: 12.5 G, UNK
     Route: 042
     Dates: start: 20040105, end: 20040105
  31. LOVENOX [Concomitant]
     Dosage: 100 MG, BID PRN
     Dates: start: 20030818, end: 20031212
  32. METOPROLOL TARTRATE [Concomitant]
     Indication: PRODUCT USED FOR UNKNOWN INDICATION
     Dosage: UNK
     Route: 048
     Dates: start: 20030801
  33. LASIX [Concomitant]
     Dosage: 20 MG, UNK
     Route: 042
     Dates: start: 20040105, end: 20040112
  34. VANCOMYCIN [Concomitant]
     Indication: PRODUCT USED FOR UNKNOWN INDICATION
     Dosage: 1 G AS NEEDED
     Route: 042
     Dates: start: 20031210, end: 20040110
  35. K-DUR [Concomitant]
     Indication: PRODUCT USED FOR UNKNOWN INDICATION
     Dosage: 20 MEQ TODAY
     Route: 048
     Dates: start: 20031209
  36. NITROGLYCERIN [Concomitant]
     Indication: PRODUCT USED FOR UNKNOWN INDICATION
     Dosage: 60-70MICROGRAMS/MINUTE
     Route: 042
     Dates: start: 20040105, end: 20040105
  37. VERSED [Concomitant]
     Indication: PRODUCT USED FOR UNKNOWN INDICATION
     Dosage: 1-3MG AS NEEDED
     Route: 042
     Dates: start: 20040104
  38. VERSED [Concomitant]
     Dosage: 1-4 MG
     Route: 042
     Dates: start: 20040105, end: 20040105
  39. VANCOMYCIN [Concomitant]
     Dosage: 1 G, UNK
     Route: 042
     Dates: start: 20040105
  40. HEPARIN SODIUM [Concomitant]
     Indication: PRODUCT USED FOR UNKNOWN INDICATION
     Dosage: 5000UNITS/1 ML
     Route: 042
     Dates: start: 20030822
  41. TOPROL-XL [Concomitant]
     Indication: PRODUCT USED FOR UNKNOWN INDICATION
     Dosage: 25 MG EVERY 12 HOURS
     Route: 048
     Dates: start: 20030713
  42. COUMADIN [Concomitant]
     Dosage: UNK
     Dates: start: 20030822
  43. TRASYLOL [Suspect]
     Dosage: 100 CC PRIME
     Dates: start: 20040105, end: 20040105
  44. PROTONIX [Concomitant]
     Indication: PRODUCT USED FOR UNKNOWN INDICATION
     Dosage: 40 MG, QD
     Route: 048
     Dates: start: 20030818
  45. VITAMIN B6 [Concomitant]
     Indication: PRODUCT USED FOR UNKNOWN INDICATION
     Dosage: 50 MG, QD
     Route: 048
     Dates: start: 20040104
  46. TYLENOL REGULAR [Concomitant]
     Indication: PRODUCT USED FOR UNKNOWN INDICATION
     Dosage: 650 MG EVERY 4 HOURS AS NEEDED
     Route: 048
     Dates: start: 20030713
  47. AVANDIA [Concomitant]
     Indication: PRODUCT USED FOR UNKNOWN INDICATION
     Dosage: 4 MG, QD
     Route: 048
     Dates: start: 20031202, end: 20031204
  48. ALBUMIN (HUMAN) [Concomitant]
     Indication: PRODUCT USED FOR UNKNOWN INDICATION
     Dosage: 12.5 G, UNK
     Route: 042
     Dates: start: 20040105, end: 20040105
  49. MANNITOL [Concomitant]
     Dosage: 12.5GM PRIME
     Dates: start: 20040105
  50. TRASYLOL [Suspect]
     Dosage: 50 ML/HR
     Route: 042
     Dates: start: 20040105, end: 20040105
  51. PANTOPRAZOLE [Concomitant]
     Indication: PRODUCT USED FOR UNKNOWN INDICATION
     Dosage: 40 MG ENTERIC COATED QD
     Route: 048
     Dates: start: 20030819, end: 20030829
  52. HYDRALAZINE [Concomitant]
     Indication: PRODUCT USED FOR UNKNOWN INDICATION
     Dosage: 50 MG EVERY 8 HOURS
     Route: 048
     Dates: start: 20030713
  53. ALTACE [Concomitant]
     Dosage: 2.5-5MG EVERY DAY
     Route: 048
     Dates: start: 20031207
  54. ACEON [Concomitant]
     Indication: PRODUCT USED FOR UNKNOWN INDICATION
     Dosage: 4 MG, UNK
     Route: 048
     Dates: start: 20031211
  55. SEVOFLURANE [Concomitant]
     Indication: PRODUCT USED FOR UNKNOWN INDICATION
     Dosage: UNK
     Route: 042
     Dates: start: 20040105, end: 20040105
  56. FENTANYL [Concomitant]
     Indication: PRODUCT USED FOR UNKNOWN INDICATION
     Dosage: 50-250MICROGRAMS
     Route: 042
     Dates: start: 20040105, end: 20040105
  57. HEPARIN [Concomitant]
     Dosage: 2000 UNITS PRIME
     Dates: start: 20040105
  58. NIPRIDE [Concomitant]
     Indication: PRODUCT USED FOR UNKNOWN INDICATION
     Dosage: 0.5MICROGRAMS/KILOGRAM/HOUR
     Route: 042
     Dates: start: 20040105, end: 20040105
  59. PROTAMINE SULFATE [Concomitant]
     Indication: PRODUCT USED FOR UNKNOWN INDICATION
     Dosage: 200 MG, UNK
     Route: 042
     Dates: start: 20040105, end: 20040105
  60. SODIUM BICARBONATE [Concomitant]
     Indication: PRODUCT USED FOR UNKNOWN INDICATION
     Dosage: 100 MEQ PRIME
     Dates: start: 20040105
  61. CALCIUM CHLORIDE [Concomitant]
     Indication: PRODUCT USED FOR UNKNOWN INDICATION
     Dosage: 500 MG PRIME
     Dates: start: 20040105

REACTIONS (10)
  - RENAL FAILURE [None]
  - EMOTIONAL DISTRESS [None]
  - STRESS [None]
  - ANXIETY [None]
  - FEAR [None]
  - PAIN [None]
  - RENAL INJURY [None]
  - RENAL IMPAIRMENT [None]
  - UNEVALUABLE EVENT [None]
  - INJURY [None]
